FAERS Safety Report 24681861 (Version 1)
Quarter: 2024Q4

REPORT INFORMATION
  Report Type: Spontaneous
  Country: US (occurrence: US)
  Receive Date: 20241130
  Receipt Date: 20241130
  Transmission Date: 20250115
  Serious: No
  Sender: Haleon PLC
  Company Number: US-HALEON-2211397

PATIENT
  Age: 73 Year
  Sex: Female

DRUGS (1)
  1. SENSODYNE PRONAMEL GENTLE WHITENING [Suspect]
     Active Substance: POTASSIUM NITRATE\SODIUM FLUORIDE
     Indication: Product used for unknown indication
     Dosage: 2 - APPLICATION (AP)
     Dates: start: 20241112, end: 20241114

REACTIONS (2)
  - Gingival blister [Recovering/Resolving]
  - Oral mucosal exfoliation [Recovering/Resolving]

NARRATIVE: CASE EVENT DATE: 20241113
